FAERS Safety Report 12584519 (Version 8)
Quarter: 2018Q3

REPORT INFORMATION
  Report Type: Spontaneous
  Country: JP (occurrence: JP)
  Receive Date: 20160722
  Receipt Date: 20180806
  Transmission Date: 20181010
  Serious: Yes (Hospitalization, Other)
  Sender: FDA-Public Use
  Company Number: JP-BRISTOL-MYERS SQUIBB COMPANY-BMS-2016-059635

PATIENT
  Age: 76 Year
  Sex: Male

DRUGS (13)
  1. OPDIVO [Suspect]
     Active Substance: NIVOLUMAB
     Indication: PRODUCT USED FOR UNKNOWN INDICATION
     Dosage: 165 MG, Q2WK
     Route: 041
     Dates: start: 20160901, end: 20160901
  2. OPDIVO [Suspect]
     Active Substance: NIVOLUMAB
     Indication: PRODUCT USED FOR UNKNOWN INDICATION
     Dosage: UNK
     Route: 041
     Dates: start: 2016, end: 2016
  3. OPDIVO [Suspect]
     Active Substance: NIVOLUMAB
     Indication: NON-SMALL CELL LUNG CANCER RECURRENT
     Dosage: 165 MG, Q2WK
     Route: 041
     Dates: start: 20160602, end: 20160602
  4. OPDIVO [Suspect]
     Active Substance: NIVOLUMAB
     Indication: PRODUCT USED FOR UNKNOWN INDICATION
     Dosage: 165 MG, Q2WK
     Route: 041
     Dates: start: 20160707, end: 20160707
  5. OPDIVO [Suspect]
     Active Substance: NIVOLUMAB
     Indication: PRODUCT USED FOR UNKNOWN INDICATION
     Dosage: 165 MG, Q2WK
     Route: 041
     Dates: start: 2016, end: 2016
  6. OPDIVO [Suspect]
     Active Substance: NIVOLUMAB
     Indication: PRODUCT USED FOR UNKNOWN INDICATION
     Dosage: 165 MG, Q2WK
     Route: 041
     Dates: start: 2016, end: 2016
  7. OPDIVO [Suspect]
     Active Substance: NIVOLUMAB
     Indication: PRODUCT USED FOR UNKNOWN INDICATION
     Dosage: 165 MG, Q2WK
     Route: 041
     Dates: start: 20160915, end: 20160915
  8. OPDIVO [Suspect]
     Active Substance: NIVOLUMAB
     Indication: PRODUCT USED FOR UNKNOWN INDICATION
     Dosage: UNK
     Route: 041
     Dates: start: 201611, end: 201611
  9. OPDIVO [Suspect]
     Active Substance: NIVOLUMAB
     Indication: PRODUCT USED FOR UNKNOWN INDICATION
     Dosage: UNK
     Route: 041
     Dates: start: 2016, end: 2016
  10. OPDIVO [Suspect]
     Active Substance: NIVOLUMAB
     Indication: PRODUCT USED FOR UNKNOWN INDICATION
     Dosage: 165 MG, Q2WK
     Route: 041
     Dates: start: 2016, end: 2016
  11. OPDIVO [Suspect]
     Active Substance: NIVOLUMAB
     Indication: PRODUCT USED FOR UNKNOWN INDICATION
     Dosage: 165 MG, Q2WK
     Route: 041
     Dates: start: 2016, end: 2016
  12. OPDIVO [Suspect]
     Active Substance: NIVOLUMAB
     Indication: PRODUCT USED FOR UNKNOWN INDICATION
     Dosage: UNK
     Route: 041
     Dates: start: 2016, end: 2016
  13. OPDIVO [Suspect]
     Active Substance: NIVOLUMAB
     Indication: PRODUCT USED FOR UNKNOWN INDICATION
     Dosage: UNK
     Route: 041
     Dates: start: 2016, end: 2016

REACTIONS (21)
  - Nausea [Unknown]
  - Headache [Unknown]
  - Asthenia [Recovering/Resolving]
  - Fatigue [Recovering/Resolving]
  - Urethral pain [Unknown]
  - Hypoaesthesia [Recovered/Resolved]
  - Pain [Unknown]
  - Dyspnoea [Recovering/Resolving]
  - Sleep disorder [Unknown]
  - Myalgia [Unknown]
  - Pollakiuria [Unknown]
  - Discomfort [Unknown]
  - Limb discomfort [Recovering/Resolving]
  - Altered state of consciousness [Unknown]
  - Swelling [Unknown]
  - Fall [Unknown]
  - Oedema [Not Recovered/Not Resolved]
  - Eye discharge [Unknown]
  - Decreased appetite [Recovering/Resolving]
  - Cough [Unknown]
  - Chest pain [Unknown]

NARRATIVE: CASE EVENT DATE: 2016
